FAERS Safety Report 4505222-7 (Version None)
Quarter: 2004Q4

REPORT INFORMATION
  Report Type: 
  Country: None (occurrence: None)
  Receive Date: 20041015
  Receipt Date: 20040611
  Transmission Date: 20050328
  Serious: Yes (Other)
  Sender: FDA-Public Use
  Company Number: 2004039616

PATIENT
  Age: 42 Year
  Sex: Female
  Weight: 86.1834 kg

DRUGS (2)
  1. NEURONTIN [Suspect]
     Indication: PELVIC PAIN
     Dosage: SEE IMAGE
     Route: 048
     Dates: start: 20040401
  2. NORETHISTERONE (NORETHISTERONE) [Concomitant]

REACTIONS (6)
  - FEELING ABNORMAL [None]
  - MEDICATION ERROR [None]
  - PAIN [None]
  - PARAESTHESIA [None]
  - SEDATION [None]
  - VISION BLURRED [None]
